FAERS Safety Report 17142583 (Version 1)
Quarter: 2019Q4

REPORT INFORMATION
  Report Type: Spontaneous
  Country: FR (occurrence: FR)
  Receive Date: 20191211
  Receipt Date: 20191211
  Transmission Date: 20200122
  Serious: Yes (Other)
  Sender: FDA-Public Use
  Company Number: FR-BAUSCH-BL-2019-064324

PATIENT
  Age: 29 Year
  Sex: Female

DRUGS (4)
  1. OFLOXACIN. [Suspect]
     Active Substance: OFLOXACIN
     Indication: PREMATURE RUPTURE OF MEMBRANES
     Route: 065
  2. OFLOXACIN. [Suspect]
     Active Substance: OFLOXACIN
     Indication: INFECTION PROPHYLAXIS
     Route: 065
  3. CLINDAMYCIN. [Suspect]
     Active Substance: CLINDAMYCIN
     Indication: INFECTION PROPHYLAXIS
     Route: 065
  4. CLINDAMYCIN. [Suspect]
     Active Substance: CLINDAMYCIN
     Indication: PREMATURE RUPTURE OF MEMBRANES
     Route: 065

REACTIONS (3)
  - Maternal exposure during pregnancy [Unknown]
  - Live birth [Unknown]
  - Clostridium difficile infection [Recovered/Resolved]
